FAERS Safety Report 7601628-8 (Version None)
Quarter: 2011Q2

REPORT INFORMATION
  Report Type: 
  Country: None (occurrence: None)
  Receive Date: 20110630
  Receipt Date: 20110617
  Transmission Date: 20111010
  Serious: Yes (Disabling, Other)
  Sender: FDA-Public Use
  Company Number: 2011060186

PATIENT
  Age: 59 Year
  Sex: Female
  Weight: 52.6173 kg

DRUGS (9)
  1. PROZAC [Concomitant]
  2. SOMA [Suspect]
     Indication: MUSCLE RELAXANT THERAPY
     Dosage: ORAL
     Route: 048
  3. SOMA [Suspect]
     Indication: FIBROMYALGIA
     Dosage: ORAL
     Route: 048
  4. VITAMIN E [Concomitant]
  5. VITAMIN B12 [Concomitant]
  6. MULTIVITAMINS (ASCORBIC ACID, ERGOCALCIFEROL, FOLIC ACID, NICOTINAMIDE [Concomitant]
  7. WELLBUTRIN [Concomitant]
  8. LYRICA [Suspect]
     Indication: FIBROMYALGIA
     Dosage: 225 MG (75 MG,3 IN 1 D),ORAL
     Route: 048
  9. VITAMIN B COMPLEX (CALCIUM PANTOTHENATE, NICOTINAMIDE, PYRIDOXINE HCL, [Concomitant]

REACTIONS (10)
  - PANIC REACTION [None]
  - ARTHRALGIA [None]
  - WEIGHT INCREASED [None]
  - PAIN IN EXTREMITY [None]
  - DRUG INEFFECTIVE [None]
  - MENTAL STATUS CHANGES [None]
  - MUSCULOSKELETAL PAIN [None]
  - DRUG DEPENDENCE [None]
  - EUPHORIC MOOD [None]
  - DEPRESSION [None]
